FAERS Safety Report 4416163-8 (Version None)
Quarter: 2004Q2

REPORT INFORMATION
  Report Type: 
  Country: None (occurrence: None)
  Receive Date: 20040623
  Receipt Date: 20040318
  Transmission Date: 20050107
  Serious: No
  Sender: FDA-Public Use
  Company Number: WAES 0403USA01642

PATIENT

DRUGS (1)
  1. INVANZ [Suspect]
     Dosage: 500 MG

REACTIONS (1)
  - DISORIENTATION [None]
